FAERS Safety Report 9535001 (Version 3)
Quarter: 2013Q4

REPORT INFORMATION
  Report Type: Spontaneous
  Country: US (occurrence: US)
  Receive Date: 20130918
  Receipt Date: 20131017
  Transmission Date: 20140711
  Serious: Yes (Hospitalization)
  Sender: FDA-Public Use
  Company Number: US-PFIZER INC-2013268052

PATIENT
  Sex: Male

DRUGS (2)
  1. DEPO-MEDROL [Suspect]
     Dosage: UNK
  2. DEPO-MEDROL [Suspect]

REACTIONS (1)
  - Central nervous system fungal infection [Unknown]
